FAERS Safety Report 6289563-1 (Version None)
Quarter: 2009Q3

REPORT INFORMATION
  Report Type: 
  Country: None (occurrence: None)
  Receive Date: 20090730
  Receipt Date: 20070530
  Transmission Date: 20100115
  Serious: Yes (Other)
  Sender: FDA-Public Use
  Company Number: US-ASTRAZENECA-2006UW11144

PATIENT
  Age: 20623 Day
  Sex: Female
  Weight: 58.1 kg

DRUGS (5)
  1. SEROQUEL [Suspect]
     Indication: ANXIETY
     Route: 048
     Dates: start: 20030101
  2. SEROQUEL [Suspect]
     Indication: DEPRESSION
     Route: 048
     Dates: start: 20030101
  3. SEROQUEL [Suspect]
     Dosage: 100-200 MG
     Route: 048
     Dates: start: 20040415
  4. SEROQUEL [Suspect]
     Dosage: 100-200 MG
     Route: 048
     Dates: start: 20040415
  5. ATENOLOL [Concomitant]
     Dosage: 25-50 MG
     Dates: start: 20031217

REACTIONS (3)
  - DIABETES MELLITUS [None]
  - DIABETIC NEUROPATHY [None]
  - TYPE 2 DIABETES MELLITUS [None]
